FAERS Safety Report 25918784 (Version 2)
Quarter: 2025Q4

REPORT INFORMATION
  Report Type: Spontaneous
  Country: JP (occurrence: JP)
  Receive Date: 20251014
  Receipt Date: 20251031
  Transmission Date: 20260117
  Serious: Yes (Hospitalization)
  Sender: BAYER HEALTHCARE PHARMACEUTICALS INC.
  Company Number: JP-BAYER-2025A135379

PATIENT
  Age: 87 Year
  Sex: Male

DRUGS (4)
  1. KERENDIA [Suspect]
     Active Substance: FINERENONE
     Dosage: UNK
  2. NIFEDIPINE [Concomitant]
     Active Substance: NIFEDIPINE
  3. FUROSEMIDE [Concomitant]
     Active Substance: FUROSEMIDE
  4. HERBALS [Concomitant]
     Active Substance: HERBALS

REACTIONS (3)
  - Femur fracture [Not Recovered/Not Resolved]
  - Fall [None]
  - Dysphagia [None]

NARRATIVE: CASE EVENT DATE: 20251013
